FAERS Safety Report 15193183 (Version 1)
Quarter: 2018Q3

REPORT INFORMATION
  Report Type: Spontaneous
  Country: PT (occurrence: PT)
  Receive Date: 20180725
  Receipt Date: 20180725
  Transmission Date: 20181010
  Serious: Yes (Hospitalization, Other)
  Sender: FDA-Public Use
  Company Number: PT-B.I. PHARMACEUTICALS,INC./RIDGEFIELD-2018-BI-010816

PATIENT
  Age: 76 Year
  Sex: Male

DRUGS (3)
  1. OFEV [Suspect]
     Active Substance: NINTEDANIB
     Indication: PRODUCT USED FOR UNKNOWN INDICATION
     Route: 065
  2. OFEV [Suspect]
     Active Substance: NINTEDANIB
     Route: 065
     Dates: end: 20180711
  3. OFEV [Suspect]
     Active Substance: NINTEDANIB
     Route: 065

REACTIONS (5)
  - Cholelithiasis [Unknown]
  - Blood bilirubin increased [Recovering/Resolving]
  - Hepatic enzyme increased [Recovering/Resolving]
  - Jaundice [Recovering/Resolving]
  - Gamma-glutamyltransferase increased [Recovered/Resolved]
